FAERS Safety Report 8539104-0 (Version None)
Quarter: 2012Q3

REPORT INFORMATION
  Report Type: 
  Country: None (occurrence: None)
  Receive Date: 20120726
  Receipt Date: 20120724
  Transmission Date: 20120928
  Serious: Yes (Hospitalization)
  Sender: FDA-Public Use
  Company Number: PHHY2012BR063397

PATIENT
  Age: 48 Year
  Sex: Female

DRUGS (4)
  1. RIFAMPICIN [Concomitant]
  2. CLOFAZIMINE [Suspect]
  3. DIPYRONE INJ [Concomitant]
  4. DAPSONE [Concomitant]
     Indication: LEPROSY
     Dosage: FOR A MONTH

REACTIONS (6)
  - SKIN DISORDER [None]
  - BLISTER [None]
  - TOXIC EPIDERMAL NECROLYSIS [None]
  - GENITAL ULCERATION [None]
  - MUCOSAL ULCERATION [None]
  - DERMATITIS BULLOUS [None]
